FAERS Safety Report 7750734-6 (Version None)
Quarter: 2011Q3

REPORT INFORMATION
  Report Type: 
  Country: None (occurrence: None)
  Receive Date: 20110914
  Receipt Date: 20110912
  Transmission Date: 20111222
  Serious: No
  Sender: FDA-Public Use
  Company Number: US-PFIZER INC-2011214670

PATIENT
  Sex: Female
  Weight: 61.678 kg

DRUGS (2)
  1. CELEBREX [Suspect]
     Indication: ARTHRALGIA
     Dosage: 200 MG, 1X/DAY
     Route: 048
     Dates: start: 20110901, end: 20110912
  2. LIPITOR [Concomitant]
     Dosage: UNK

REACTIONS (1)
  - CONSTIPATION [None]
